FAERS Safety Report 19771728 (Version 2)
Quarter: 2021Q3

REPORT INFORMATION
  Report Type: Spontaneous
  Country: PL (occurrence: PL)
  Receive Date: 20210831
  Receipt Date: 20210831
  Transmission Date: 20211014
  Serious: Yes (Other)
  Sender: FDA-Public Use
  Company Number: PL-MYLANLABS-2021M1057179

PATIENT
  Age: 87 Year
  Sex: Female

DRUGS (10)
  1. EUTHYROX [Concomitant]
     Active Substance: LEVOTHYROXINE SODIUM
     Dosage: UNK, DOSE: 1/2?0?0 (ON SATURDAYS AND SUNDAYS 1?0?0) TAKEN
  2. PULMOTEROL [Concomitant]
     Dosage: UNK, DOSE: 2X1 INHALATION
  3. KALDYUM [Concomitant]
     Active Substance: POTASSIUM CHLORIDE
     Dosage: UNK UNK, QD, DOSE: 1?0?0
  4. VICEBROL [Concomitant]
     Active Substance: VINPOCETINE
     Dosage: UNK, DOSE: AS OF NOW
  5. POLPRIL [Concomitant]
     Active Substance: RAMIPRIL
     Dosage: UNK UNK, QD, DOSE: 1?0?0
  6. DIUVER [Concomitant]
     Active Substance: TORSEMIDE
     Dosage: UNK UNK, QD, DOSE: 1?0?0
  7. DIGOXIN. [Concomitant]
     Active Substance: DIGOXIN
     Dosage: UNK UNK, QD, DOSE: 1?0?0
  8. ATORIS [Concomitant]
     Active Substance: ATORVASTATIN CALCIUM
     Dosage: UNK UNK, QD, DOSE: 0?0?1
  9. ELIQUIS [Concomitant]
     Active Substance: APIXABAN
     Dosage: UNK UNK, BID, DOSE: 1?0?1
  10. PANTOPRAZOLE [Suspect]
     Active Substance: PANTOPRAZOLE
     Indication: GASTRITIS
     Dosage: 20 MILLIGRAM, QD, TAKEN ON AN EMPTY STOMACH, 30 MIN BEFORE

REACTIONS (1)
  - Clostridium difficile infection [Unknown]
